FAERS Safety Report 9290690 (Version 2)
Quarter: 2013Q2

REPORT INFORMATION
  Report Type: Report from Study
  Country: US (occurrence: US)
  Receive Date: 20130515
  Receipt Date: 20130603
  Transmission Date: 20140414
  Serious: Yes (Other)
  Sender: FDA-Public Use
  Company Number: US-PURDUE-USA-2013-0098991

PATIENT
  Age: 58 Year
  Sex: Female
  Weight: 76.19 kg

DRUGS (2)
  1. OXYCONTIN (NDA 22-272) [Suspect]
     Indication: ARTHRALGIA
     Dosage: 20 MG, Q12H
     Route: 048
  2. OXYCONTIN (NDA 22-272) [Suspect]
     Indication: PAIN
     Dosage: 10 MG, Q12H
     Route: 048

REACTIONS (4)
  - Tooth disorder [Unknown]
  - Tooth fracture [Unknown]
  - Toothache [Unknown]
  - Gingival pain [Unknown]
